FAERS Safety Report 15681197 (Version 1)
Quarter: 2018Q4

REPORT INFORMATION
  Report Type: Spontaneous
  Country: RU (occurrence: RU)
  Receive Date: 20181203
  Receipt Date: 20181203
  Transmission Date: 20190205
  Serious: Yes (Disabling, Other)
  Sender: FDA-Public Use
  Company Number: RU-TEVA-2018-RU-980696

PATIENT
  Age: 51 Year
  Sex: Male
  Weight: 130 kg

DRUGS (9)
  1. CAPOTEN [Concomitant]
     Active Substance: CAPTOPRIL
     Indication: HYPERTONIA
  2. PLAVIX [Concomitant]
     Active Substance: CLOPIDOGREL BISULFATE
     Dosage: AFTER SURGERY
     Dates: start: 2015, end: 2017
  3. VALZ 160 MG [Suspect]
     Active Substance: VALSARTAN
     Indication: HYPERTONIA
  4. L-THYROXIN [Concomitant]
     Active Substance: LEVOTHYROXINE SODIUM
     Dosage: 100/125; AFTER SURGERY
     Dates: start: 2015
  5. NITROGLYCERIN. [Concomitant]
     Active Substance: NITROGLYCERIN
     Indication: HYPERTONIA
  6. CARDIOMAGNYL [Concomitant]
     Active Substance: ASPIRIN\MAGNESIUM HYDROXIDE
     Dosage: AFTER SURGERY
     Dates: start: 2015
  7. VALZ 80 MG [Suspect]
     Active Substance: VALSARTAN
     Indication: HYPERTONIA
  8. BETALOC [Concomitant]
     Active Substance: METOPROLOL TARTRATE
     Dosage: 50 MILLIGRAM DAILY; AFTER SURGERY
     Dates: start: 2015
  9. METFORMIN [Concomitant]
     Active Substance: METFORMIN HYDROCHLORIDE
     Indication: DIABETES MELLITUS
     Dosage: 2000 MILLIGRAM DAILY;
     Dates: start: 2009

REACTIONS (1)
  - Thyroid adenoma [Not Recovered/Not Resolved]

NARRATIVE: CASE EVENT DATE: 20141229
